FAERS Safety Report 14302181 (Version 1)
Quarter: 2017Q4

REPORT INFORMATION
  Report Type: Spontaneous
  Country: FR (occurrence: FR)
  Receive Date: 20171219
  Receipt Date: 20171219
  Transmission Date: 20180321
  Serious: Yes (Hospitalization)
  Sender: FDA-Public Use
  Company Number: FR-PFIZER INC-2017535808

PATIENT
  Age: 59 Year
  Sex: Female
  Weight: 51 kg

DRUGS (3)
  1. TRIFLUCAN [Suspect]
     Active Substance: FLUCONAZOLE
     Indication: INFECTION
     Dosage: UNK
     Dates: start: 20170629, end: 20170704
  2. CEFEPIME HCL [Suspect]
     Active Substance: CEFEPIME HYDROCHLORIDE
     Indication: INFECTION
     Dosage: UNK
     Route: 042
     Dates: start: 20170630, end: 20170704
  3. TIBERAL [Suspect]
     Active Substance: ORNIDAZOLE
     Indication: INFECTION
     Dosage: UNK
     Dates: start: 20170630, end: 20170704

REACTIONS (2)
  - Acute kidney injury [Recovering/Resolving]
  - Encephalopathy [Recovered/Resolved]

NARRATIVE: CASE EVENT DATE: 20170629
